FAERS Safety Report 5026257-4 (Version None)
Quarter: 2006Q2

REPORT INFORMATION
  Report Type: 
  Country: None (occurrence: None)
  Receive Date: 20060608
  Receipt Date: 20060420
  Transmission Date: 20061013
  Serious: Yes (Other)
  Sender: FDA-Public Use
  Company Number: JPKYO-S-20060020

PATIENT
  Sex: Male

DRUGS (2)
  1. NAVELBINE [Suspect]
     Indication: NON-SMALL CELL LUNG CANCER
     Dates: start: 20060308, end: 20060308
  2. GEMZAR [Concomitant]

REACTIONS (3)
  - BLOOD PRESSURE DECREASED [None]
  - SHOCK [None]
  - VOMITING [None]
